FAERS Safety Report 6498632-2 (Version None)
Quarter: 2009Q4

REPORT INFORMATION
  Report Type: 
  Country: None (occurrence: None)
  Receive Date: 20091127
  Receipt Date: 20090918
  Transmission Date: 20100525
  Serious: Yes (Hospitalization)
  Sender: FDA-Public Use
  Company Number: 291845

PATIENT
  Age: 63 Year
  Sex: Female
  Weight: 68.9467 kg

DRUGS (2)
  1. NOVOLOG [Suspect]
     Indication: TYPE 1 DIABETES MELLITUS
     Dosage: 12 UNITS BEFORE MEALS, SUBCUTANEOUS
     Route: 058
     Dates: start: 20080301
  2. LEVEMIR [Suspect]
     Indication: TYPE 1 DIABETES MELLITUS
     Dosage: 55 IU IN THE MORNING, SUBCUTANEOUS; 55 IU, QD AT NIGHT, SUBCUTANEOUS
     Route: 058
     Dates: start: 20080301

REACTIONS (1)
  - BLOOD GLUCOSE DECREASED [None]
